FAERS Safety Report 10267378 (Version 1)
Quarter: 2014Q2

REPORT INFORMATION
  Report Type: Spontaneous
  Country: IN (occurrence: IN)
  Receive Date: 20140630
  Receipt Date: 20140630
  Transmission Date: 20141212
  Serious: Yes (Other)
  Sender: FDA-Public Use
  Company Number: IN-MYLANLABS-2014S1014657

PATIENT
  Age: 11 Year
  Sex: Female

DRUGS (1)
  1. LEVETIRACETAM [Suspect]
     Indication: TONIC CONVULSION
     Dosage: 40MG/KG/D
     Route: 065

REACTIONS (2)
  - Acute psychosis [Recovered/Resolved]
  - Incorrect dose administered [Recovered/Resolved]
